FAERS Safety Report 7807637-8 (Version None)
Quarter: 2011Q4

REPORT INFORMATION
  Report Type: 
  Country: None (occurrence: None)
  Receive Date: 20111011
  Receipt Date: 20111004
  Transmission Date: 20120403
  Serious: Yes (Other)
  Sender: FDA-Public Use
  Company Number: ES-PFIZER INC-2011237448

PATIENT
  Age: 51 Year
  Sex: Female

DRUGS (2)
  1. ATORVASTATIN CALCIUM [Suspect]
     Indication: TYPE IIA HYPERLIPIDAEMIA
     Dosage: 40 MG FOR 4 YEARS
  2. FLUVASTATIN [Suspect]
     Dosage: 80 MG, UNK
     Dates: end: 20051201

REACTIONS (2)
  - LIVER INJURY [None]
  - AUTOIMMUNE HEPATITIS [None]
